FAERS Safety Report 25955260 (Version 1)
Quarter: 2025Q4

REPORT INFORMATION
  Report Type: Report from Study
  Country: EU (occurrence: EU)
  Receive Date: 20251024
  Receipt Date: 20251024
  Transmission Date: 20260118
  Serious: Yes (Hospitalization)
  Sender: IPSEN BIOPHARMACEUTICALS, INC.
  Company Number: EU-SERVIER-S23007347

PATIENT
  Age: 63 Year
  Sex: Male

DRUGS (9)
  1. ONIVYDE [Suspect]
     Active Substance: IRINOTECAN HYDROCHLORIDE
     Indication: Metastatic gastric cancer
     Dosage: 60 MG/M2
     Route: 033
  2. FLUOROURACIL [Suspect]
     Active Substance: FLUOROURACIL
     Indication: Metastatic gastric cancer
     Dosage: UNKNOWN
     Dates: start: 20230627, end: 20230629
  3. LEUCOVORIN [Suspect]
     Active Substance: LEUCOVORIN\LEUCOVORIN CALCIUM
     Indication: Metastatic gastric cancer
     Dosage: UNKNOWN
     Dates: start: 20230627, end: 20230629
  4. OXALIPLATIN [Suspect]
     Active Substance: OXALIPLATIN
     Indication: Metastatic gastric cancer
     Dosage: UNKNOWN
     Dates: start: 20230627, end: 20230629
  5. COLOFIBER [Concomitant]
     Dosage: 7 MG, QD
     Route: 048
     Dates: start: 20230627, end: 20230629
  6. IMODIUM [Concomitant]
     Active Substance: LOPERAMIDE HYDROCHLORIDE
     Dosage: 2 MG
     Route: 048
     Dates: start: 20230627, end: 20230630
  7. MOTILIUM [Concomitant]
     Active Substance: DOMPERIDONE
     Dosage: 10 MG
     Route: 048
     Dates: start: 20230627, end: 20230630
  8. MORPHINE SULFATE [Concomitant]
     Active Substance: MORPHINE SULFATE
     Dosage: 10 MG
     Route: 048
     Dates: start: 20230627, end: 20230630
  9. OMEPRAZOLE [Concomitant]
     Active Substance: OMEPRAZOLE
     Dosage: 40 MG, QD
     Route: 048
     Dates: start: 20230628, end: 20230630

REACTIONS (1)
  - Hepatic function abnormal [Not Recovered/Not Resolved]

NARRATIVE: CASE EVENT DATE: 20230629
